FAERS Safety Report 9266528 (Version 1)
Quarter: 2013Q2

REPORT INFORMATION
  Report Type: Spontaneous
  Country: US (occurrence: US)
  Receive Date: 20130502
  Receipt Date: 20130502
  Transmission Date: 20140414
  Serious: Yes (Other)
  Sender: FDA-Public Use
  Company Number: US-TEVA-401474USA

PATIENT
  Sex: Female
  Weight: 54.48 kg

DRUGS (4)
  1. PROAIR HFA [Suspect]
     Indication: BRONCHIECTASIS
     Dosage: PRN
     Route: 055
  2. CENTRUM SILVER [Suspect]
     Indication: VITAMIN SUPPLEMENTATION
     Dosage: QD
     Route: 048
     Dates: start: 2013
  3. SPIRIVA [Suspect]
     Indication: BRONCHIECTASIS
     Dosage: 2 PUFFS DAILY
     Route: 055
  4. SYMBICORT [Suspect]
     Indication: BRONCHIECTASIS
     Dosage: 2 PUFFS BID
     Route: 055

REACTIONS (3)
  - Choking [Unknown]
  - Dry mouth [Unknown]
  - Dry throat [Unknown]
